FAERS Safety Report 6400388-6 (Version None)
Quarter: 2009Q4

REPORT INFORMATION
  Report Type: 
  Country: None (occurrence: None)
  Receive Date: 20091007
  Receipt Date: 20091007
  Transmission Date: 20100525
  Serious: Yes (Hospitalization)
  Sender: FDA-Public Use
  Company Number: None

PATIENT
  Sex: Male
  Weight: 72 kg

DRUGS (14)
  1. NEXAVAR [Suspect]
     Indication: CHRONIC MYELOID LEUKAEMIA
     Dosage: 400 MG BID PO
     Route: 048
     Dates: start: 20090318, end: 20090423
  2. NEXAVAR [Suspect]
     Indication: MYELODYSPLASTIC SYNDROME
     Dosage: 400 MG BID PO
     Route: 048
     Dates: start: 20090318, end: 20090423
  3. ASPIRIN [Concomitant]
  4. PLAVIX [Concomitant]
  5. PROTONIX [Concomitant]
  6. BENICAR [Concomitant]
  7. CRESTOR [Concomitant]
  8. TRAMADOL [Concomitant]
  9. ZOFRAN [Concomitant]
  10. FLOMAX [Concomitant]
  11. MARINOL [Concomitant]
  12. TYLENOL [Concomitant]
  13. TYLENOL ES [Concomitant]
  14. METOPROLOL [Concomitant]

REACTIONS (4)
  - HAEMATOCRIT DECREASED [None]
  - HAEMOGLOBIN DECREASED [None]
  - HYPOTENSION [None]
  - PRESYNCOPE [None]
